FAERS Safety Report 8335653-9 (Version None)
Quarter: 2012Q2

REPORT INFORMATION
  Report Type: 
  Country: None (occurrence: None)
  Receive Date: 20120504
  Receipt Date: 20120426
  Transmission Date: 20120825
  Serious: Yes (Hospitalization)
  Sender: FDA-Public Use
  Company Number: US-BIOGENIDEC-2012BI014812

PATIENT
  Age: 51 Year
  Sex: Female

DRUGS (2)
  1. AVONEX [Suspect]
     Route: 030
     Dates: start: 20100101, end: 20100531
  2. AVONEX [Suspect]
     Indication: MULTIPLE SCLEROSIS
     Route: 030
     Dates: start: 19990101, end: 19990101

REACTIONS (11)
  - WEIGHT DECREASED [None]
  - THROMBOCYTOPENIC PURPURA [None]
  - PHARYNGITIS STREPTOCOCCAL [None]
  - PSYCHOTIC DISORDER [None]
  - CONDITION AGGRAVATED [None]
  - PETECHIAE [None]
  - DEPRESSION [None]
  - BALANCE DISORDER [None]
  - PARANOIA [None]
  - NIGHTMARE [None]
  - AMNESIA [None]
